FAERS Safety Report 14420933 (Version 1)
Quarter: 2018Q1

REPORT INFORMATION
  Report Type: Spontaneous
  Country: US (occurrence: US)
  Receive Date: 20180122
  Receipt Date: 20180122
  Transmission Date: 20180509
  Serious: No
  Sender: FDA-Public Use
  Company Number: US-ROCHE-1952723

PATIENT
  Sex: Female

DRUGS (7)
  1. KINERET [Concomitant]
     Active Substance: ANAKINRA
  2. RITUXAN [Suspect]
     Active Substance: RITUXIMAB
     Indication: PRODUCT USED FOR UNKNOWN INDICATION
     Dosage: REPEAT DOSES EVERY 6 MONTHS
     Route: 042
  3. ENBREL [Concomitant]
     Active Substance: ETANERCEPT
  4. SIMPONI [Concomitant]
     Active Substance: GOLIMUMAB
  5. HUMIRA [Concomitant]
     Active Substance: ADALIMUMAB
  6. REMICADE [Concomitant]
     Active Substance: INFLIXIMAB
  7. TOCILIZUMAB. [Suspect]
     Active Substance: TOCILIZUMAB
     Indication: PRODUCT USED FOR UNKNOWN INDICATION
     Route: 065

REACTIONS (1)
  - Drug effect decreased [Unknown]
